FAERS Safety Report 17880591 (Version 2)
Quarter: 2021Q1

REPORT INFORMATION
  Report Type: Spontaneous
  Country: CA (occurrence: CA)
  Receive Date: 20200610
  Receipt Date: 20210119
  Transmission Date: 20210419
  Serious: Yes (Hospitalization, Other)
  Sender: FDA-Public Use
  Company Number: CA-SHIRE-CA202018732

PATIENT
  Age: 7 Year
  Sex: Male

DRUGS (3)
  1. CLONIDINE. [Concomitant]
     Active Substance: CLONIDINE
     Indication: PRODUCT USED FOR UNKNOWN INDICATION
     Dosage: 0175 MILLIGRAM, TID
     Route: 048
  2. VYVANSE [Suspect]
     Active Substance: LISDEXAMFETAMINE DIMESYLATE
     Indication: PRODUCT USED FOR UNKNOWN INDICATION
     Dosage: 10 MILLIGRAM, 1X/DAY:QD
     Route: 048
     Dates: start: 20191004, end: 20191004
  3. ATIVAN [Concomitant]
     Active Substance: LORAZEPAM
     Indication: PRODUCT USED FOR UNKNOWN INDICATION
     Dosage: 1 MILLIGRAM, SINGLE
     Route: 048
     Dates: start: 20191004, end: 20191004

REACTIONS (7)
  - Vomiting [Unknown]
  - Tourette^s disorder [Unknown]
  - Agitation [Unknown]
  - Nausea [Unknown]
  - Therapeutic product ineffective [Unknown]
  - Condition aggravated [Unknown]
  - Central nervous system stimulation [Unknown]

NARRATIVE: CASE EVENT DATE: 20191004
